FAERS Safety Report 24748583 (Version 2)
Quarter: 2025Q1

REPORT INFORMATION
  Report Type: Spontaneous
  Country: US (occurrence: US)
  Receive Date: 20241218
  Receipt Date: 20250203
  Transmission Date: 20250408
  Serious: No
  Sender: MERCK
  Company Number: US-009507513-2411USA010934

PATIENT
  Age: 80 Year
  Sex: Female
  Weight: 61.2 kg

DRUGS (44)
  1. WINREVAIR [Suspect]
     Active Substance: SOTATERCEPT-CSRK
     Indication: Product used for unknown indication
  2. TYVASO [Suspect]
     Active Substance: TREPROSTINIL
     Indication: Pulmonary hypertension
     Dosage: 72 MICROGRAM (12 BREATHS), FOUR TIMES A DAY (QID)
     Dates: start: 20091202
  3. CYMBALTA [Concomitant]
     Active Substance: DULOXETINE HYDROCHLORIDE
  4. TRELEGY ELLIPTA [Concomitant]
     Active Substance: FLUTICASONE FUROATE\UMECLIDINIUM BROMIDE\VILANTEROL TRIFENATATE
  5. LASIX [Concomitant]
     Active Substance: FUROSEMIDE
  6. CARDIZEN [Concomitant]
  7. TYLENOL ARTHRITIS PAIN [Concomitant]
     Active Substance: ACETAMINOPHEN
  8. LACTASE [Concomitant]
     Active Substance: LACTASE
  9. ACIPHEX [Concomitant]
     Active Substance: RABEPRAZOLE SODIUM
  10. LEVOTHYROXINE SODIUM [Concomitant]
     Active Substance: LEVOTHYROXINE SODIUM
  11. OPSUMIT [Concomitant]
     Active Substance: MACITENTAN
  12. IRON [Concomitant]
     Active Substance: IRON
  13. ADCIRCA [Concomitant]
     Active Substance: TADALAFIL
  14. OXYGEN [Concomitant]
     Active Substance: OXYGEN
  15. SPIRONOLACTONE [Concomitant]
     Active Substance: SPIRONOLACTONE
  16. VITAMIN B12 [Concomitant]
     Active Substance: CYANOCOBALAMIN
  17. CALCIUM\CHOLECALCIFEROL [Concomitant]
     Active Substance: CALCIUM\CHOLECALCIFEROL
  18. VITAMIN B COMPLEX NOS [Concomitant]
     Active Substance: CYANOCOBALAMIN\PYRIDOXINE HYDROCHLORIDE\RIBOFLAVIN\SODIUM PANTOTHENATE\THIAMINE HYDROCHLORIDE\VITAMI
  19. VITAMIN B COMPLEX [Concomitant]
     Active Substance: CYANOCOBALAMIN\DEXPANTHENOL\NIACINAMIDE\PYRIDOXINE HYDROCHLORIDE\RIBOFLAVIN 5^-PHOSPHATE SODIUM\THIA
     Route: 048
  20. AVAR [Concomitant]
     Active Substance: SULFACETAMIDE SODIUM\SULFUR
  21. DOCUSATE SODIUM [Concomitant]
     Active Substance: DOCUSATE SODIUM
  22. FUROSEMIDE [Concomitant]
     Active Substance: FUROSEMIDE
     Route: 048
  23. VITAMINS NOS [Concomitant]
     Active Substance: VITAMINS
     Route: 048
  24. ALPRAZOLAM [Concomitant]
     Active Substance: ALPRAZOLAM
  25. SUPER B COMPLEX [ASCORBIC ACID;BIOTIN;CYANOCOBALAMIN;FOLIC ACID;NICOTI [Concomitant]
  26. TRAZODONE HCL [Concomitant]
     Active Substance: TRAZODONE HYDROCHLORIDE
  27. GEMTESA [Concomitant]
     Active Substance: VIBEGRON
  28. POTASSIUM CHLORIDE [Concomitant]
     Active Substance: POTASSIUM CHLORIDE
  29. AMBIEN CR [Concomitant]
     Active Substance: ZOLPIDEM TARTRATE
  30. PREMARIN [Concomitant]
     Active Substance: ESTROGENS, CONJUGATED
  31. NALOXONE HCL [Concomitant]
     Active Substance: NALOXONE HYDROCHLORIDE
  32. LYRICA [Concomitant]
     Active Substance: PREGABALIN
  33. BUPRENORPHINE AND NALOXONE [Concomitant]
     Active Substance: BUPRENORPHINE HYDROCHLORIDE\NALOXONE HYDROCHLORIDE
  34. MUCUS RELIEF [Concomitant]
     Active Substance: GUAIFENESIN
  35. AMITRIPTYLINE HYDROCHLORIDE [Concomitant]
     Active Substance: AMITRIPTYLINE HYDROCHLORIDE
  36. SIMVASTATIN [Concomitant]
     Active Substance: SIMVASTATIN
  37. FENTANYL CITRATE [Concomitant]
     Active Substance: FENTANYL CITRATE
  38. BELSOMRA [Concomitant]
     Active Substance: SUVOREXANT
  39. METAXALONE [Concomitant]
     Active Substance: METAXALONE
  40. ADVAIR HFA [Concomitant]
     Active Substance: FLUTICASONE PROPIONATE\SALMETEROL XINAFOATE
  41. OXYCODONE HYDROCHLORIDE [Concomitant]
     Active Substance: OXYCODONE HYDROCHLORIDE
  42. RELISTOR [Concomitant]
     Active Substance: METHYLNALTREXONE BROMIDE
  43. ORPHENADRINE CITRATE [Concomitant]
     Active Substance: ORPHENADRINE CITRATE
  44. FERROUS SULFATE [Concomitant]
     Active Substance: FERROUS SULFATE

REACTIONS (3)
  - Dyspnoea exertional [Unknown]
  - Wrong technique in product usage process [Unknown]
  - Product dose omission in error [Unknown]

NARRATIVE: CASE EVENT DATE: 20241118
